FAERS Safety Report 10081991 (Version 1)
Quarter: 2014Q2

REPORT INFORMATION
  Report Type: Spontaneous
  Country: US (occurrence: None)
  Receive Date: 20140415
  Receipt Date: 20140415
  Transmission Date: 20141212
  Serious: Yes (Hospitalization)
  Sender: FDA-Public Use
  Company Number: None

PATIENT
  Age: 87 Year
  Sex: Male
  Weight: 79.8 kg

DRUGS (2)
  1. LOSARTAN [Suspect]
     Indication: HYPERTENSION
     Route: 048
     Dates: start: 20080305, end: 20140311
  2. ASPIRIN [Suspect]
     Indication: THROMBOSIS PROPHYLAXIS
     Route: 048
     Dates: start: 20070330, end: 20140311

REACTIONS (6)
  - Renal failure [None]
  - Hyperkalaemia [None]
  - Electrocardiogram T wave peaked [None]
  - Renal failure acute [None]
  - Metabolic acidosis [None]
  - Renal tubular necrosis [None]
